FAERS Safety Report 8307973-5 (Version None)
Quarter: 2012Q2

REPORT INFORMATION
  Report Type: 
  Country: None (occurrence: None)
  Receive Date: 20120424
  Receipt Date: 20120418
  Transmission Date: 20120825
  Serious: Yes (Other)
  Sender: FDA-Public Use
  Company Number: US-GLAXOSMITHKLINE-A0974191A

PATIENT
  Age: 25 Year
  Sex: Male

DRUGS (5)
  1. COUGH MEDICATION [Concomitant]
  2. STEROID SHOT [Concomitant]
  3. UNSPECIFIED TREATMENT [Concomitant]
  4. VENTOLIN [Suspect]
     Indication: BRONCHITIS
     Dosage: 1PUFF SINGLE DOSE
     Route: 055
     Dates: start: 20120418, end: 20120418
  5. ANTIBIOTIC [Concomitant]

REACTIONS (3)
  - DEPRESSED LEVEL OF CONSCIOUSNESS [None]
  - ILL-DEFINED DISORDER [None]
  - INCOHERENT [None]
